FAERS Safety Report 16395090 (Version 1)
Quarter: 2019Q2

REPORT INFORMATION
  Report Type: Spontaneous
  Country: US (occurrence: US)
  Receive Date: 20190604
  Receipt Date: 20190604
  Transmission Date: 20190711
  Serious: Yes (Hospitalization)
  Sender: FDA-Public Use
  Company Number: None

PATIENT
  Age: 62 Year
  Sex: Female

DRUGS (4)
  1. IBUPROFEN 800 [Concomitant]
     Active Substance: IBUPROFEN
     Dates: start: 20190503
  2. CARVEDILOL 3.125 [Concomitant]
     Active Substance: CARVEDILOL
     Dates: start: 20190503
  3. DILTIAZEM 24H ER(CD) 120MG CAPS [Suspect]
     Active Substance: DILTIAZEM HYDROCHLORIDE
     Indication: HYPERTENSION
     Route: 048
     Dates: start: 20190505, end: 20190516
  4. SPIRONOLACTONE 50 [Concomitant]
     Dates: start: 20190503

REACTIONS (4)
  - Blood pressure increased [None]
  - Heart rate increased [None]
  - Drug hypersensitivity [None]
  - Dyspnoea [None]

NARRATIVE: CASE EVENT DATE: 20190516
